FAERS Safety Report 24457023 (Version 2)
Quarter: 2025Q2

REPORT INFORMATION
  Report Type: Report from Study
  Country: US (occurrence: US)
  Receive Date: 20241018
  Receipt Date: 20250531
  Transmission Date: 20250717
  Serious: Yes (Hospitalization, Other)
  Sender: STEMLINE THERAPEUTICS
  Company Number: US-Stemline Therapeutics, Inc.-2023ST003962

PATIENT

DRUGS (1)
  1. ORSERDU [Suspect]
     Active Substance: ELACESTRANT
     Indication: Breast cancer female
     Dosage: 345 MG, ONCE DAILY
     Route: 048
     Dates: start: 20230712

REACTIONS (12)
  - Bone cancer [Unknown]
  - Hospitalisation [Unknown]
  - Tumour marker increased [Unknown]
  - Blood magnesium decreased [Unknown]
  - Oedema peripheral [Unknown]
  - Pain [Unknown]
  - Therapeutic response unexpected [Unknown]
  - Arthropathy [Unknown]
  - White blood cell count decreased [Unknown]
  - Haemoglobin decreased [Unknown]
  - Back pain [Unknown]
  - Fatigue [Unknown]
